FAERS Safety Report 6804121-5 (Version None)
Quarter: 2010Q2

REPORT INFORMATION
  Report Type: 
  Country: None (occurrence: None)
  Receive Date: 20100628
  Receipt Date: 20070403
  Transmission Date: 20101027
  Serious: No
  Sender: FDA-Public Use
  Company Number: US-PFIZER INC-2007001059

PATIENT
  Sex: Male

DRUGS (6)
  1. XALATAN [Suspect]
     Indication: GLAUCOMA
     Route: 047
  2. TRAVATAN [Suspect]
  3. HYDROCHLOROTHIAZIDE [Concomitant]
  4. PLAVIX [Concomitant]
  5. ACETYLSALICYLIC ACID [Concomitant]
  6. IMDUR [Concomitant]

REACTIONS (3)
  - BLOOD CHOLESTEROL INCREASED [None]
  - HYPERTENSION [None]
  - PHOTOPSIA [None]
